FAERS Safety Report 17517405 (Version 1)
Quarter: 2020Q1

REPORT INFORMATION
  Report Type: Spontaneous
  Country: US (occurrence: US)
  Receive Date: 20200309
  Receipt Date: 20200309
  Transmission Date: 20200409
  Serious: No
  Sender: FDA-Public Use
  Company Number: None

PATIENT
  Age: 81 Year
  Sex: Female
  Weight: 40.5 kg

DRUGS (23)
  1. DICYCLOMINE [Concomitant]
     Active Substance: DICYCLOMINE HYDROCHLORIDE
  2. CLOTRIMAZOLE. [Concomitant]
     Active Substance: CLOTRIMAZOLE
  3. CENTRUM SILVER MULTIVITAMIN [Concomitant]
  4. PRESERVISION AREDS [Concomitant]
     Active Substance: MINERALS\VITAMINS
  5. NOCTURNAL OXYGEN [Concomitant]
  6. DEXILANT [Concomitant]
     Active Substance: DEXLANSOPRAZOLE
  7. MUCINEX [Concomitant]
     Active Substance: GUAIFENESIN
  8. VALIUM [Concomitant]
     Active Substance: DIAZEPAM
  9. POTASSIUM [Concomitant]
     Active Substance: POTASSIUM
  10. GEMFIBROZIL. [Concomitant]
     Active Substance: GEMFIBROZIL
  11. ADVAIR HFA [Concomitant]
     Active Substance: FLUTICASONE PROPIONATE\SALMETEROL XINAFOATE
  12. ALBUTEROL. [Concomitant]
     Active Substance: ALBUTEROL
  13. GLUCOSAMINE/CHONDROITIN [Concomitant]
  14. RECLAST [Suspect]
     Active Substance: ZOLEDRONIC ACID
     Indication: OSTEOPOROSIS
     Dosage: ?          QUANTITY:5 IV INFUSION;OTHER FREQUENCY:ONE TIME;?
     Route: 042
  15. CALCIUM W/ VIT D [Concomitant]
  16. POLYETHLENE GLYCOL [Concomitant]
  17. LEVAQUIN [Concomitant]
     Active Substance: LEVOFLOXACIN
  18. VITAMIN B12 [Concomitant]
     Active Substance: CYANOCOBALAMIN
  19. VITAMIN D [Concomitant]
     Active Substance: VITAMIN D NOS
  20. BENEFIBER [Concomitant]
     Active Substance: STARCH, WHEAT
  21. THEOPHYLLINE [Concomitant]
     Active Substance: THEOPHYLLINE ANHYDROUS
  22. ATROVENT [Concomitant]
     Active Substance: IPRATROPIUM BROMIDE
  23. VITAMIN C [Concomitant]
     Active Substance: ASCORBIC ACID

REACTIONS (5)
  - Metamorphopsia [None]
  - Impaired driving ability [None]
  - Visual impairment [None]
  - Neovascular age-related macular degeneration [None]
  - Discharge [None]

NARRATIVE: CASE EVENT DATE: 20200128
